FAERS Safety Report 4376396-6 (Version None)
Quarter: 2004Q2

REPORT INFORMATION
  Report Type: 
  Country: None (occurrence: None)
  Receive Date: 20040610
  Receipt Date: 20040610
  Transmission Date: 20050107
  Serious: Yes (Hospitalization)
  Sender: FDA-Public Use
  Company Number: None

PATIENT
  Sex: Male
  Weight: 82.5547 kg

DRUGS (12)
  1. GATIFLOXACIN [Suspect]
     Indication: PNEUMONIA
     Dosage: 400 MG ORAL
     Route: 048
     Dates: start: 20040529, end: 20040603
  2. LEVOFLOXACIN [Suspect]
     Indication: PNEUMONIA
     Dosage: 500 MG QD ORAL
     Route: 048
     Dates: start: 20040603, end: 20040606
  3. SALMETEROL [Concomitant]
  4. ALBUTEROL [Concomitant]
  5. WARFARIN SODIUM [Concomitant]
  6. METFORMIN HCL [Concomitant]
  7. OMEPRAZOLE [Concomitant]
  8. TERAZOSIN HCL [Concomitant]
  9. SIMVASTATIN [Concomitant]
  10. SERTRALINE HCL [Concomitant]
  11. IRBESARTAN [Concomitant]
  12. GLIPIZIDE [Concomitant]

REACTIONS (1)
  - BLOOD GLUCOSE INCREASED [None]
